FAERS Safety Report 11339699 (Version 2)
Quarter: 2015Q3

REPORT INFORMATION
  Report Type: Spontaneous
  Country: CA (occurrence: None)
  Receive Date: 20150803
  Receipt Date: 20150812
  Transmission Date: 20151125
  Serious: Yes (Hospitalization, Other)
  Sender: FDA-Public Use
  Company Number: CO-PL-CA-2015-153

PATIENT
  Sex: Female

DRUGS (7)
  1. ARAVA [Suspect]
     Active Substance: LEFLUNOMIDE
     Indication: RHEUMATOID ARTHRITIS
  2. PREDNISONE. [Concomitant]
     Active Substance: PREDNISONE
  3. XELJANZ (UNKNOWN) (TOFACITINIBCITRATE CITRATE) [Concomitant]
  4. PLAQUENIL [Suspect]
     Active Substance: HYDROXYCHLOROQUINE SULFATE
     Indication: RHEUMATOID ARTHRITIS
  5. FLUCONAZOLE. [Concomitant]
     Active Substance: FLUCONAZOLE
  6. METHOTREXATE [Concomitant]
     Active Substance: METHOTREXATE
  7. INDOMETACIN [Concomitant]
     Active Substance: INDOMETHACIN

REACTIONS (3)
  - Renal failure [None]
  - Sepsis [None]
  - Localised infection [None]
